FAERS Safety Report 16979110 (Version 2)
Quarter: 2019Q4

REPORT INFORMATION
  Report Type: Spontaneous
  Country: US (occurrence: US)
  Receive Date: 20191031
  Receipt Date: 20191107
  Transmission Date: 20200122
  Serious: No
  Sender: FDA-Public Use
  Company Number: US-PFIZER INC-2019468881

PATIENT
  Age: 73 Year
  Sex: Female
  Weight: 66 kg

DRUGS (9)
  1. NABUMETONE. [Concomitant]
     Active Substance: NABUMETONE
     Dosage: UNK
  2. IMVEXXY [Concomitant]
     Active Substance: ESTRADIOL
     Indication: BACTERIAL VAGINOSIS
  3. IMVEXXY [Concomitant]
     Active Substance: ESTRADIOL
     Indication: ATROPHIC VULVOVAGINITIS
     Dosage: 10 UG, 2X/WEEK
     Route: 067
     Dates: start: 2019
  4. IMVEXXY [Concomitant]
     Active Substance: ESTRADIOL
     Indication: PAIN
  5. IMVEXXY [Concomitant]
     Active Substance: ESTRADIOL
     Indication: URINARY TRACT INFECTION
  6. CLINDAMYCIN. [Suspect]
     Active Substance: CLINDAMYCIN
     Indication: OSTEOMYELITIS
     Dosage: UNK
     Dates: start: 2019
  7. ALPRAZOLAM. [Concomitant]
     Active Substance: ALPRAZOLAM
     Dosage: UNK
  8. IMVEXXY [Concomitant]
     Active Substance: ESTRADIOL
     Indication: MUCOSAL DISCOLOURATION
  9. IMVEXXY [Concomitant]
     Active Substance: ESTRADIOL
     Indication: BLOOD OESTROGEN DECREASED
     Dosage: 10 UG, ALTERNATE DAY (EVERY OTHER DAY)
     Route: 067
     Dates: start: 201906, end: 2019

REACTIONS (2)
  - Cystitis [Unknown]
  - Fungal infection [Recovering/Resolving]

NARRATIVE: CASE EVENT DATE: 2019
